FAERS Safety Report 24606876 (Version 1)
Quarter: 2024Q4

REPORT INFORMATION
  Report Type: Spontaneous
  Country: RU (occurrence: RU)
  Receive Date: 20241112
  Receipt Date: 20241112
  Transmission Date: 20250114
  Serious: Yes (Hospitalization, Other)
  Sender: DR REDDYS
  Company Number: RU-RZN-SPO/RUS/24/0016655

PATIENT
  Age: 14 Year
  Sex: Female

DRUGS (5)
  1. OMEPRAZOLE [Suspect]
     Active Substance: OMEPRAZOLE
     Indication: Suicide attempt
     Dosage: PER OS
     Route: 048
     Dates: start: 20241101, end: 20241101
  2. GOSSYPOL [Suspect]
     Active Substance: GOSSYPOL
     Indication: Suicide attempt
     Dosage: 14 TABLETS
     Route: 048
     Dates: start: 20241101, end: 20241101
  3. MAGNESIUM ASPARTATE\POTASSIUM ASPARTATE [Suspect]
     Active Substance: MAGNESIUM ASPARTATE\POTASSIUM ASPARTATE
     Indication: Suicide attempt
     Dosage: 18 TABLETS
     Route: 048
     Dates: start: 20241101, end: 20241101
  4. UMIFENOVIR [Suspect]
     Active Substance: UMIFENOVIR
     Indication: Suicide attempt
     Dosage: 2 TABLETS
     Route: 048
     Dates: start: 20241101, end: 20241101
  5. SENNA [Suspect]
     Active Substance: SENNA LEAF\SENNOSIDES\SENNOSIDES A AND B
     Indication: Suicide attempt
     Dosage: 10 TABLETS
     Route: 048
     Dates: start: 20241101, end: 20241101

REACTIONS (1)
  - Suicide attempt [Unknown]

NARRATIVE: CASE EVENT DATE: 20241101
